FAERS Safety Report 5176449-9 (Version None)
Quarter: 2006Q4

REPORT INFORMATION
  Report Type: 
  Country: None (occurrence: None)
  Receive Date: 20061215
  Receipt Date: 20061204
  Transmission Date: 20070319
  Serious: Yes (Other)
  Sender: FDA-Public Use
  Company Number: US-BRISTOL-MYERS SQUIBB COMPANY-13609755

PATIENT
  Age: 54 Year
  Sex: Female

DRUGS (7)
  1. CYCLOPHOSPHAMIDE [Suspect]
     Indication: BREAST CANCER
     Route: 048
  2. DOXORUBICIN HCL [Suspect]
     Indication: BREAST CANCER
     Route: 042
  3. METHOTREXATE [Suspect]
     Indication: BREAST CANCER
     Route: 042
  4. FLUOROURACIL [Concomitant]
     Indication: BREAST CANCER
     Route: 042
  5. VINCRISTINE [Concomitant]
     Indication: BREAST CANCER
     Route: 042
  6. LEUCOVORIN CALCIUM [Concomitant]
     Indication: BREAST CANCER
     Route: 048
  7. RADIOTHERAPY [Concomitant]
     Indication: BREAST CANCER
     Dates: start: 19910101

REACTIONS (1)
  - LIP AND/OR ORAL CAVITY CANCER [None]
